FAERS Safety Report 7204306-2 (Version None)
Quarter: 2010Q4

REPORT INFORMATION
  Report Type: 
  Country: None (occurrence: None)
  Receive Date: 20101230
  Receipt Date: 20101222
  Transmission Date: 20110411
  Serious: Yes (Hospitalization)
  Sender: FDA-Public Use
  Company Number: FR-ROCHE-750057

PATIENT
  Age: 76 Year
  Sex: Male

DRUGS (1)
  1. ROACTEMRA [Suspect]
     Dosage: FORM: INFUSION. FREQUENCY: CYCLE.
     Route: 042

REACTIONS (2)
  - MELAENA [None]
  - RECTAL HAEMORRHAGE [None]
